FAERS Safety Report 8242292-7 (Version None)
Quarter: 2012Q1

REPORT INFORMATION
  Report Type: 
  Country: None (occurrence: None)
  Receive Date: 20120329
  Receipt Date: 20120327
  Transmission Date: 20120608
  Serious: No
  Sender: FDA-Public Use
  Company Number: US-PFIZER INC-2012078907

PATIENT
  Sex: Female
  Weight: 56.689 kg

DRUGS (1)
  1. ADVIL PM [Suspect]
     Dosage: UNK
     Dates: start: 20120327

REACTIONS (5)
  - PARAESTHESIA [None]
  - ANXIETY [None]
  - DIZZINESS [None]
  - FATIGUE [None]
  - FEAR [None]
